FAERS Safety Report 20349704 (Version 1)
Quarter: 2022Q1

REPORT INFORMATION
  Report Type: Spontaneous
  Country: GB (occurrence: GB)
  Receive Date: 20220119
  Receipt Date: 20220119
  Transmission Date: 20220423
  Serious: Yes (Other)
  Sender: FDA-Public Use
  Company Number: None

PATIENT
  Age: 74 Year
  Sex: Female
  Weight: 61 kg

DRUGS (14)
  1. ATORVASTATIN [Suspect]
     Active Substance: ATORVASTATIN
     Indication: Product used for unknown indication
     Dates: start: 20211221
  2. AMOXICILLIN [Concomitant]
     Active Substance: AMOXICILLIN
     Dosage: TAKE ONE 3 TIMES/DAY FOR 7 DAYS
     Dates: start: 20210617
  3. ASPIRIN [Concomitant]
     Active Substance: ASPIRIN
     Dosage: TAKE ONE DAILY
     Dates: start: 20210617
  4. ATORVASTATIN [Concomitant]
     Active Substance: ATORVASTATIN
     Dosage: TAKE ONE DAILY
     Dates: start: 20210617, end: 20211221
  5. TIOTROPIUM BROMIDE [Concomitant]
     Active Substance: TIOTROPIUM BROMIDE
     Dosage: INHALE 1 DOSE ONCE DAILY VIA ZONDA INHALER
     Dates: start: 20210921, end: 20211221
  6. CALCEOS [Concomitant]
     Active Substance: CALCIUM CARBONATE\CHOLECALCIFEROL
     Dosage: TAKE TWO EVERY DAY
     Dates: start: 20210617
  7. CODEINE PHOSPHATE [Concomitant]
     Active Substance: CODEINE PHOSPHATE
     Dosage: TAKE ONE OR TWO TBL AS NEEDED FOR SEVERE PAIN M...
     Dates: start: 20210617, end: 20211221
  8. DIAZEPAM [Concomitant]
     Active Substance: DIAZEPAM
     Dosage: TAKE ONE UP TO THREE TIMES DAILY FOR ACUTE BACK...
     Dates: start: 20211110, end: 20211114
  9. LERCANIDIPINE HYDROCHLORIDE [Concomitant]
     Active Substance: LERCANIDIPINE HYDROCHLORIDE
     Dosage: TAKE ONE DAILY
     Dates: start: 20210617
  10. LEVOTHYROXINE [Concomitant]
     Active Substance: LEVOTHYROXINE
     Dosage: TAKE ONE EACH MORNING
     Dates: start: 20210617
  11. PREDNISOLONE [Concomitant]
     Active Substance: PREDNISOLONE
     Dosage: TAKE EIGHT TABLETS AS A SINGLE DOSE, EACH MORNI...
     Dates: start: 20210617
  12. ALBUTEROL [Concomitant]
     Active Substance: ALBUTEROL
     Dosage: INHALE 2 DOSES AS NEEDED
     Dates: start: 20210617
  13. TIOTROPIUM [Concomitant]
     Active Substance: TIOTROPIUM
     Dosage: INHALE 1 DOSE ONCE DAILY
     Dates: start: 20210617
  14. VAGIFEM [Concomitant]
     Active Substance: ESTRADIOL
     Dosage: TWICE A WEEK
     Dates: start: 20210617

REACTIONS (2)
  - Joint swelling [Recovered/Resolved]
  - Peripheral swelling [Recovered/Resolved]

NARRATIVE: CASE EVENT DATE: 20211221
